FAERS Safety Report 23784924 (Version 1)
Quarter: 2024Q2

REPORT INFORMATION
  Report Type: Spontaneous
  Country: US (occurrence: US)
  Receive Date: 20240425
  Receipt Date: 20240425
  Transmission Date: 20240716
  Serious: Yes (Other)
  Sender: FDA-Public Use
  Company Number: US-PFIZER INC-PV202400049711

PATIENT
  Age: 83 Year
  Sex: Female
  Weight: 56.508 kg

DRUGS (3)
  1. BRAFTOVI [Suspect]
     Active Substance: ENCORAFENIB
     Indication: Colon cancer
     Dosage: 300 MG ORALLY DAILY. TAKE WHOLE WITH OR WITHOUT FOOD
     Route: 048
  2. BRAFTOVI [Suspect]
     Active Substance: ENCORAFENIB
     Dosage: ENCORAFENIB Q28D CYCLE LENGTH: 28 NUMBER CYCLES: 6
     Dates: start: 20240401
  3. CETUXIMAB [Suspect]
     Active Substance: CETUXIMAB
     Indication: Colon cancer
     Dosage: CETUXIMAB D1,8,15,22
     Dates: start: 20240401

REACTIONS (4)
  - Depressed level of consciousness [Unknown]
  - Off label use [Unknown]
  - Headache [Unknown]
  - Somnolence [Unknown]

NARRATIVE: CASE EVENT DATE: 20240401
